FAERS Safety Report 15887608 (Version 1)
Quarter: 2019Q1

REPORT INFORMATION
  Report Type: Spontaneous
  Country: DE (occurrence: DE)
  Receive Date: 20190130
  Receipt Date: 20190130
  Transmission Date: 20190417
  Serious: Yes (Congenital Anomaly, Other)
  Sender: FDA-Public Use
  Company Number: DE-ACCORD-104053

PATIENT
  Age: 1 Day
  Sex: Male
  Weight: 3.6 kg

DRUGS (1)
  1. SERTRALINE [Suspect]
     Active Substance: SERTRALINE HYDROCHLORIDE
     Indication: DEPRESSION
     Dosage: 75 MG/D
     Route: 064
     Dates: start: 20170215, end: 20171126

REACTIONS (6)
  - Atrial septal defect [Unknown]
  - Foetal exposure during pregnancy [Unknown]
  - Hypertonia neonatal [Recovering/Resolving]
  - Hydrocele [Unknown]
  - Patent ductus arteriosus [Unknown]
  - Agitation neonatal [Recovering/Resolving]

NARRATIVE: CASE EVENT DATE: 20171126
